FAERS Safety Report 9303319 (Version 1)
Quarter: 2012Q4

REPORT INFORMATION
  Report Type: Spontaneous
  Country: US (occurrence: None)
  Receive Date: 20121212
  Receipt Date: 20121212
  Transmission Date: 20130627
  Serious: Yes (Life-Threatening)
  Sender: FDA-Public Use
  Company Number: 12US000013

PATIENT
  Age: 71 Year
  Sex: Male
  Weight: 82.9 kg

DRUGS (8)
  1. PRIDOPIDINE [Suspect]
     Indication: HUNTINGTONS DISEASE
     Dates: start: 20110713
  2. ASPIRIN (ACETYLSALICYLIC ACID) [Concomitant]
  3. MULTIVITAMINS [Concomitant]
  4. PROSTEON [Concomitant]
  5. WARFARIN (WARFARIN) [Concomitant]
  6. CLARITIN-D 12 HOUR [Concomitant]
  7. CELEBREX (CELECOXIB) [Concomitant]
  8. ALENDRONATE (ALENDRONATE SODIUM) [Concomitant]

REACTIONS (1)
  - Plasma cell myeloma [None]
